FAERS Safety Report 8902595 (Version 1)
Quarter: 2012Q4

REPORT INFORMATION
  Report Type: 
  Country: US (occurrence: US)
  Receive Date: 20121112
  Receipt Date: 20121112
  Transmission Date: 20130627
  Serious: Yes (Other)
  Sender: FDA-Public Use
  Company Number: PHHY2012US102944

PATIENT
  Age: 50 Year
  Sex: Female

DRUGS (13)
  1. TRIAMCINOLONE [Suspect]
     Indication: LUMBAR RADICULOPATHY
     Dosage: 80 mg, UNK
     Route: 008
     Dates: start: 20110715
  2. BUPIVACAINE [Concomitant]
     Dosage: 2 DF, UNK
     Dates: start: 20110715
  3. OMNIPAQUE [Concomitant]
     Dosage: 1 DF, UNK
     Dates: start: 20110715
  4. TOPIRAMATE [Concomitant]
  5. RIZATRIPTAN [Concomitant]
  6. IBUPROFEN [Concomitant]
  7. PHENDIMETRAZINE [Concomitant]
  8. DIAZEPAM [Concomitant]
  9. METHOCARBAMOL [Concomitant]
  10. HYDROCODONE W/ACETAMINOPHEN [Concomitant]
  11. ETODOLAC [Concomitant]
  12. OMEPRAZOLE [Concomitant]
  13. SALINE [Concomitant]
     Dosage: 2 DF, UNK
     Dates: start: 20110715

REACTIONS (3)
  - Menstruation irregular [Not Recovered/Not Resolved]
  - Vaginal haemorrhage [Recovered/Resolved]
  - Back pain [Recovered/Resolved]
